FAERS Safety Report 7746195-3 (Version None)
Quarter: 2011Q3

REPORT INFORMATION
  Report Type: 
  Country: None (occurrence: None)
  Receive Date: 20110913
  Receipt Date: 20110909
  Transmission Date: 20111222
  Serious: Yes (Death, Other)
  Sender: FDA-Public Use
  Company Number: GB-ROCHE-784584

PATIENT
  Age: 91 Year
  Sex: Female

DRUGS (3)
  1. NAPROXEN [Suspect]
     Indication: RENAL FAILURE
     Dosage: FOR ONE WEEK
     Route: 048
  2. LEVOTHYROXINE SODIUM [Concomitant]
  3. ASPIRIN [Suspect]
     Indication: RENAL FAILURE
     Route: 065

REACTIONS (2)
  - INFECTIOUS PERITONITIS [None]
  - ULCER [None]
